FAERS Safety Report 12617836 (Version 1)
Quarter: 2016Q3

REPORT INFORMATION
  Report Type: Spontaneous
  Country: US (occurrence: US)
  Receive Date: 20160803
  Receipt Date: 20160803
  Transmission Date: 20161109
  Serious: No
  Sender: FDA-Public Use
  Company Number: US-PFIZER INC-2016370172

PATIENT
  Sex: Female

DRUGS (1)
  1. LYRICA [Suspect]
     Active Substance: PREGABALIN
     Indication: NEUROPATHY PERIPHERAL
     Dosage: 100 MG, DAILY (25 MG IN THE MORNING AND AFTERNOON AND 50MG AT NIGHT)

REACTIONS (5)
  - Conjunctivitis [Unknown]
  - Intentional product misuse [Unknown]
  - Eye irritation [Unknown]
  - Ocular hyperaemia [Unknown]
  - Dry eye [Unknown]
